FAERS Safety Report 7692204-X (Version None)
Quarter: 2011Q3

REPORT INFORMATION
  Report Type: 
  Country: None (occurrence: None)
  Receive Date: 20110818
  Receipt Date: 20110808
  Transmission Date: 20111222
  Serious: Yes (Other)
  Sender: FDA-Public Use
  Company Number: PHEH2011US00886

PATIENT
  Sex: Female

DRUGS (12)
  1. LITHIUM [Concomitant]
     Dosage: 300 MG, QD
  2. FLEXERIL [Concomitant]
     Dosage: UNK UKN, UNK
  3. CYMBALTA [Concomitant]
     Dosage: 30 MG, QD
  4. VITAMIN D [Concomitant]
     Dosage: 50000 IU, ONCE IN WEEK
  5. VALTREX [Concomitant]
     Dosage: 1000 MG, QD
  6. BACLOFEN [Concomitant]
     Dosage: 10 MG, PRN
  7. GAMMAGARD [Concomitant]
     Dosage: 40 G, ONCE PER MONTH
  8. GILENYA [Suspect]
     Dosage: 0.5 MG, QD
     Route: 048
     Dates: start: 20110608, end: 20110617
  9. VALIUM [Concomitant]
     Dosage: UNK UKN, UNK
  10. VITAMIN B-12 [Concomitant]
     Dosage: UNK UKN, UNK
  11. THYROID TAB [Concomitant]
     Dosage: 90 MG, QD
  12. MAGNESIUM [Concomitant]
     Dosage: UNK UKN, UNK

REACTIONS (8)
  - FALL [None]
  - FATIGUE [None]
  - SOMNOLENCE [None]
  - MOVEMENT DISORDER [None]
  - MUSCULAR WEAKNESS [None]
  - CLONUS [None]
  - ACNE [None]
  - PARAESTHESIA [None]
